FAERS Safety Report 5391790-2 (Version None)
Quarter: 2007Q3

REPORT INFORMATION
  Report Type: 
  Country: None (occurrence: None)
  Receive Date: 20070717
  Receipt Date: 20070322
  Transmission Date: 20080115
  Serious: No
  Sender: FDA-Public Use
  Company Number: 2006JP001905

PATIENT
  Age: 17 Year
  Sex: Male

DRUGS (1)
  1. PROGRAF [Suspect]
     Indication: DERMATITIS ATOPIC
     Dosage: TOPICAL
     Route: 061

REACTIONS (1)
  - LYMPHADENOPATHY [None]
